FAERS Safety Report 24660779 (Version 1)
Quarter: 2024Q4

REPORT INFORMATION
  Report Type: Spontaneous
  Country: US (occurrence: US)
  Receive Date: 20241125
  Receipt Date: 20241125
  Transmission Date: 20250115
  Serious: No
  Sender: AVADEL CNS PHARMACEUTICALS, LLC
  Company Number: US-AVADEL CNS PHARMACEUTICALS, LLC-2024AVA01912

PATIENT
  Sex: Male

DRUGS (2)
  1. LUMRYZ [Suspect]
     Active Substance: SODIUM OXYBATE
     Dosage: 4.5 G, ONCE NIGHTLY AT 8 PM
  2. LITHIUM [Suspect]
     Active Substance: LITHIUM
     Dosage: UNK

REACTIONS (4)
  - Terminal insomnia [Not Recovered/Not Resolved]
  - Abnormal dreams [Not Recovered/Not Resolved]
  - Fatigue [Not Recovered/Not Resolved]
  - Somnolence [Not Recovered/Not Resolved]
